FAERS Safety Report 9824769 (Version 14)
Quarter: 2019Q3

REPORT INFORMATION
  Report Type: Report from Study
  Country: CA (occurrence: CA)
  Receive Date: 20140117
  Receipt Date: 20190826
  Transmission Date: 20191005
  Serious: Yes (Other)
  Sender: FDA-Public Use
  Company Number: CA-ROCHE-1156242

PATIENT
  Age: 53 Year
  Sex: Female
  Weight: 77.1 kg

DRUGS (16)
  1. METHYLPREDNISOLONE. [Concomitant]
     Active Substance: METHYLPREDNISOLONE
     Route: 042
     Dates: start: 20120314
  2. OMEGA 9 FATTY ACIDS [Concomitant]
  3. RITUXAN [Suspect]
     Active Substance: RITUXIMAB
     Indication: RHEUMATOID ARTHRITIS
     Dosage: LAST RITUXIMAB INFUSION: 04/MAR/2014?PREVIOUS RITUXIMAB DOSE WAS RECEIVED ON 15/OCT/2015?ON 23/FEB/2
     Route: 042
     Dates: start: 20120314
  4. CYMBALTA [Concomitant]
     Active Substance: DULOXETINE HYDROCHLORIDE
  5. OTHER LIPID MODIFYING AGENTS [Concomitant]
     Active Substance: UNSPECIFIED INGREDIENT
  6. DIPHENHYDRAMINE HCL [Concomitant]
     Active Substance: DIPHENHYDRAMINE HYDROCHLORIDE
     Route: 048
     Dates: start: 20120314
  7. PRAVASTATIN. [Concomitant]
     Active Substance: PRAVASTATIN
  8. ACETAMINOPHEN. [Concomitant]
     Active Substance: ACETAMINOPHEN
     Route: 048
     Dates: start: 20120314
  9. CALCIUM [Concomitant]
     Active Substance: CALCIUM
  10. NAPROXEN. [Concomitant]
     Active Substance: NAPROXEN
  11. ADALAT [Concomitant]
     Active Substance: NIFEDIPINE
  12. FOLIC ACID. [Suspect]
     Active Substance: FOLIC ACID
     Indication: PRODUCT USED FOR UNKNOWN INDICATION
     Route: 065
     Dates: end: 201310
  13. SYNTHROID [Concomitant]
     Active Substance: LEVOTHYROXINE SODIUM
  14. OMEGA 3 [DOCOSAHEXAENOIC ACID;EICOSAPENTAENOIC ACID] [Concomitant]
  15. ENALAPRIL [Concomitant]
     Active Substance: ENALAPRIL
     Indication: BLOOD PRESSURE MEASUREMENT
  16. METHOTREXATE. [Suspect]
     Active Substance: METHOTREXATE
     Indication: PRODUCT USED FOR UNKNOWN INDICATION
     Route: 065
     Dates: end: 201310

REACTIONS (23)
  - Cough [Unknown]
  - Nasopharyngitis [Unknown]
  - Blood pressure systolic abnormal [Unknown]
  - Infusion related reaction [Recovered/Resolved]
  - Somnolence [Unknown]
  - Blood pressure systolic increased [Unknown]
  - Pharyngeal paraesthesia [Recovered/Resolved]
  - Diabetes mellitus [Not Recovered/Not Resolved]
  - Rheumatoid arthritis [Not Recovered/Not Resolved]
  - Back pain [Not Recovered/Not Resolved]
  - Fungal infection [Not Recovered/Not Resolved]
  - Hepatic enzyme increased [Unknown]
  - Blood pressure increased [Not Recovered/Not Resolved]
  - Skin infection [Not Recovered/Not Resolved]
  - Abdominal pain upper [Recovered/Resolved]
  - Paraesthesia ear [Recovered/Resolved]
  - Urinary tract infection [Unknown]
  - Oxygen saturation decreased [Unknown]
  - Acne [Recovering/Resolving]
  - Abdominal pain [Unknown]
  - Rash [Unknown]
  - Diarrhoea [Recovered/Resolved]
  - Nodule [Not Recovered/Not Resolved]

NARRATIVE: CASE EVENT DATE: 201211
